FAERS Safety Report 15458666 (Version 1)
Quarter: 2018Q4

REPORT INFORMATION
  Report Type: Spontaneous
  Country: US (occurrence: US)
  Receive Date: 20181003
  Receipt Date: 20181003
  Transmission Date: 20190204
  Serious: Yes (Other)
  Sender: FDA-Public Use
  Company Number: US-VIIV HEALTHCARE LIMITED-US2018178363

PATIENT
  Sex: Male

DRUGS (1)
  1. TIVICAY [Suspect]
     Active Substance: DOLUTEGRAVIR SODIUM
     Dates: start: 20180801

REACTIONS (8)
  - Decreased interest [Not Recovered/Not Resolved]
  - Suicidal ideation [Unknown]
  - Mood altered [Unknown]
  - Fatigue [Not Recovered/Not Resolved]
  - Irritability [Unknown]
  - Pain [Not Recovered/Not Resolved]
  - Impaired work ability [Unknown]
  - Joint range of motion decreased [Unknown]

NARRATIVE: CASE EVENT DATE: 201808
